FAERS Safety Report 5048642-7 (Version None)
Quarter: 2006Q3

REPORT INFORMATION
  Report Type: 
  Country: None (occurrence: None)
  Receive Date: 20060712
  Receipt Date: 20051006
  Transmission Date: 20061208
  Serious: Yes (Death, Hospitalization, Other)
  Sender: FDA-Public Use
  Company Number: PHEH2005US11227

PATIENT
  Age: 67 Year
  Sex: Female
  Weight: 70.748 kg

DRUGS (8)
  1. AVANDIA [Concomitant]
     Dosage: 4 MG, QD
     Route: 048
  2. IMDUR [Concomitant]
     Dosage: 60 MG, QD
     Route: 048
  3. ALLOPURINOL [Suspect]
     Dosage: 300 MG, QD
     Route: 048
  4. LIPITOR                                 /NET/ [Concomitant]
     Dosage: 20 MG, QD
     Route: 048
  5. DIOVAN [Concomitant]
     Dosage: 60 MG, BID
     Route: 048
  6. ALLEGRA [Concomitant]
     Dosage: 180 MG, QD
     Route: 048
  7. KLONOPIN [Concomitant]
     Dosage: 0.5 MG, QD
     Route: 048
  8. LAMISIL [Suspect]
     Indication: NAIL TINEA
     Dosage: 250 MG, QD
     Route: 048
     Dates: start: 20040617

REACTIONS (50)
  - ACUTE RESPIRATORY FAILURE [None]
  - ASTHENIA [None]
  - BLOOD CALCIUM DECREASED [None]
  - CHILLS [None]
  - CHRONIC OBSTRUCTIVE PULMONARY DISEASE [None]
  - COLITIS [None]
  - DEHYDRATION [None]
  - DEPRESSION [None]
  - DIABETES MELLITUS INADEQUATE CONTROL [None]
  - DIABETES MELLITUS INSULIN-DEPENDENT [None]
  - DIARRHOEA [None]
  - DISSEMINATED INTRAVASCULAR COAGULATION [None]
  - DIZZINESS [None]
  - DYSPHAGIA [None]
  - DYSPNOEA [None]
  - EOSINOPHILIA [None]
  - EXFOLIATIVE RASH [None]
  - FATIGUE [None]
  - GENERAL PHYSICAL HEALTH DETERIORATION [None]
  - HEADACHE [None]
  - HYPERNATRAEMIA [None]
  - HYPERSENSITIVITY [None]
  - HYPOTENSION [None]
  - HYPOTHERMIA [None]
  - LETHARGY [None]
  - LEUKOCYTOCLASTIC VASCULITIS [None]
  - LEUKOCYTOSIS [None]
  - MALNUTRITION [None]
  - MULTI-ORGAN FAILURE [None]
  - MYOCARDIAL INFARCTION [None]
  - NAUSEA [None]
  - PARAESTHESIA [None]
  - PHARYNGOLARYNGEAL PAIN [None]
  - PITTING OEDEMA [None]
  - PNEUMONIA [None]
  - PROTHROMBIN TIME PROLONGED [None]
  - PRURITUS [None]
  - PYELONEPHRITIS [None]
  - PYREXIA [None]
  - RASH ERYTHEMATOUS [None]
  - RASH GENERALISED [None]
  - RECTAL HAEMORRHAGE [None]
  - RENAL FAILURE ACUTE [None]
  - SEPTIC SHOCK [None]
  - SOMNOLENCE [None]
  - TREMOR [None]
  - URTICARIA [None]
  - VOMITING [None]
  - WEIGHT DECREASED [None]
  - WHEEZING [None]
